FAERS Safety Report 13259713 (Version 9)
Quarter: 2019Q3

REPORT INFORMATION
  Report Type: Report from Study
  Country: US (occurrence: US)
  Receive Date: 20170222
  Receipt Date: 20190903
  Transmission Date: 20191004
  Serious: Yes (Hospitalization, Other)
  Sender: FDA-Public Use
  Company Number: US-PFIZER INC-2017077139

PATIENT
  Age: 86 Year
  Sex: Female
  Weight: 82 kg

DRUGS (4)
  1. IBRANCE [Suspect]
     Active Substance: PALBOCICLIB
     Dosage: 100 MG, CYCLIC (DAY 1-DAY 21 FOLLOWED BY 7 DAYS OFF EVERY 28 DAYS)
     Route: 048
     Dates: start: 20161220
  2. LYRICA [Concomitant]
     Active Substance: PREGABALIN
     Dosage: UNK
     Dates: start: 201805
  3. IBRANCE [Suspect]
     Active Substance: PALBOCICLIB
     Indication: BREAST CANCER METASTATIC
     Dosage: 125 MG, CYCLIC (DAY 1-DAY 21 FOLLOWED BY 7 DAYS OFF EVERY 28 DAYS)
     Route: 048
     Dates: start: 20160520, end: 20161219
  4. IBRANCE [Suspect]
     Active Substance: PALBOCICLIB
     Dosage: 100 MG, CYCLIC (100MG, 21-DAYS 7-OFF)
     Dates: start: 2019

REACTIONS (12)
  - Osteomyelitis [Recovered/Resolved]
  - Diarrhoea [Unknown]
  - Sinusitis [Recovered/Resolved]
  - Product dose omission [Unknown]
  - Hair disorder [Recovered/Resolved]
  - Constipation [Unknown]
  - Periorbital oedema [Unknown]
  - Eye infection [Recovering/Resolving]
  - Erythema [Unknown]
  - White blood cell count decreased [Recovered/Resolved]
  - Fatigue [Unknown]
  - Bone marrow failure [Unknown]

NARRATIVE: CASE EVENT DATE: 2018
